FAERS Safety Report 26077757 (Version 1)
Quarter: 2025Q4

REPORT INFORMATION
  Report Type: Spontaneous
  Country: US (occurrence: US)
  Receive Date: 20251122
  Receipt Date: 20251122
  Transmission Date: 20260117
  Serious: No
  Sender: MDD OPERATIONS
  Company Number: US-MDD US Operations-MDD202508-003019

PATIENT
  Age: 84 Year
  Sex: Female

DRUGS (3)
  1. ONAPGO [Suspect]
     Active Substance: APOMORPHINE HYDROCHLORIDE
     Indication: Parkinson^s disease
     Dosage: FOR 16 HOURS
     Dates: start: 20250807
  2. ONAPGO [Suspect]
     Active Substance: APOMORPHINE HYDROCHLORIDE
     Indication: On and off phenomenon
     Dosage: 1 CARTRIDGE UNDER THE SKIN FOR 16 HOURS OR LESS EACH DAY.?CONTINUOUS DOSE (MAX 6MG/HR OR 98MG/DAY) A
     Route: 058
     Dates: start: 202508
  3. RYTARY [Concomitant]
     Active Substance: CARBIDOPA\LEVODOPA
     Dosage: NOT PROVIDED

REACTIONS (5)
  - Discomfort [Unknown]
  - Dizziness [Not Recovered/Not Resolved]
  - Fatigue [Not Recovered/Not Resolved]
  - Nausea [Not Recovered/Not Resolved]
  - Injection site irritation [Unknown]

NARRATIVE: CASE EVENT DATE: 20250808
